FAERS Safety Report 21033998 (Version 1)
Quarter: 2022Q3

REPORT INFORMATION
  Report Type: Spontaneous
  Country: US (occurrence: None)
  Receive Date: 20220701
  Receipt Date: 20220701
  Transmission Date: 20221027
  Serious: Yes (Life-Threatening, Hospitalization, Disabling, Other)
  Sender: FDA-Public Use
  Company Number: None

PATIENT
  Age: 90 Year
  Sex: Female
  Weight: 54 kg

DRUGS (8)
  1. ARICEPT [Suspect]
     Active Substance: DONEPEZIL HYDROCHLORIDE
     Indication: Off label use
     Dosage: OTHER QUANTITY : 1 TABLET(S);?OTHER FREQUENCY : EVERY DAY;?
     Route: 048
     Dates: start: 20220618, end: 20220623
  2. ARICEPT [Suspect]
     Active Substance: DONEPEZIL HYDROCHLORIDE
     Indication: Anxiety
  3. AMLODIPINE BESYLATE [Concomitant]
     Active Substance: AMLODIPINE BESYLATE
  4. CLOPIDOGREL [Concomitant]
     Active Substance: CLOPIDOGREL BISULFATE
  5. docusate liq 50ml/5ml [Concomitant]
  6. poly glycol powder - i capful every morning [Concomitant]
  7. senna 8.6 mg [Concomitant]
  8. vtramin d 1000U [Concomitant]

REACTIONS (15)
  - Drooling [None]
  - Aphasia [None]
  - Condition aggravated [None]
  - Balance disorder [None]
  - Product prescribing issue [None]
  - Coma [None]
  - Hypothermia [None]
  - Feeding disorder [None]
  - Abnormal dreams [None]
  - Bedridden [None]
  - Decubitus ulcer [None]
  - Product complaint [None]
  - Wrong technique in product usage process [None]
  - Drug level increased [None]
  - Confusional state [None]

NARRATIVE: CASE EVENT DATE: 20220624
